FAERS Safety Report 20170000 (Version 3)
Quarter: 2022Q1

REPORT INFORMATION
  Report Type: Report from Study
  Country: US (occurrence: None)
  Receive Date: 20211210
  Receipt Date: 20220131
  Transmission Date: 20220423
  Serious: Yes (Other)
  Sender: FDA-Public Use
  Company Number: 2021A799671

PATIENT
  Age: 771 Month
  Sex: Female

DRUGS (4)
  1. LYNPARZA [Suspect]
     Active Substance: OLAPARIB
     Indication: Fallopian tube cancer
     Route: 048
     Dates: start: 20211008
  2. METOPROLOL [Suspect]
     Active Substance: METOPROLOL
     Indication: Blood pressure measurement
     Route: 048
  3. ZETIA [Concomitant]
     Active Substance: EZETIMIBE
  4. GABAPENTIN [Concomitant]
     Active Substance: GABAPENTIN

REACTIONS (8)
  - Blood cholesterol abnormal [Unknown]
  - Hepatitis [Unknown]
  - Insomnia [Unknown]
  - Rhinorrhoea [Unknown]
  - Blood pressure abnormal [Recovering/Resolving]
  - Vomiting [Unknown]
  - Nausea [Not Recovered/Not Resolved]
  - Headache [Recovering/Resolving]

NARRATIVE: CASE EVENT DATE: 20211201
